FAERS Safety Report 5822281-X (Version None)
Quarter: 2008Q3

REPORT INFORMATION
  Report Type: 
  Country: None (occurrence: None)
  Receive Date: 20080723
  Receipt Date: 20080723
  Transmission Date: 20090109
  Serious: Yes (Other)
  Sender: FDA-Public Use
  Company Number: None

PATIENT
  Age: 51 Year
  Sex: Female
  Weight: 88.4514 kg

DRUGS (1)
  1. CHANTIX [Suspect]
     Indication: SMOKING CESSATION THERAPY

REACTIONS (41)
  - ABDOMINAL PAIN [None]
  - ABNORMAL DREAMS [None]
  - AGGRESSION [None]
  - ARTHRALGIA [None]
  - ASTHENIA [None]
  - BACK PAIN [None]
  - CHILLS [None]
  - CONFUSIONAL STATE [None]
  - CONSTIPATION [None]
  - CRYING [None]
  - CYSTITIS [None]
  - DEPRESSION [None]
  - DISORIENTATION [None]
  - DIZZINESS [None]
  - DRY EYE [None]
  - DRY MOUTH [None]
  - DYSPNOEA [None]
  - DYSSTASIA [None]
  - FEELING ABNORMAL [None]
  - HEADACHE [None]
  - HOMELESS [None]
  - HYPOAESTHESIA [None]
  - IMPAIRED WORK ABILITY [None]
  - INSOMNIA [None]
  - IRRITABILITY [None]
  - LIBIDO DECREASED [None]
  - MEMORY IMPAIRMENT [None]
  - MOOD SWINGS [None]
  - NAUSEA [None]
  - NECK PAIN [None]
  - PAIN [None]
  - PALPITATIONS [None]
  - PANIC ATTACK [None]
  - PNEUMONIA [None]
  - RASH [None]
  - RESTLESS LEGS SYNDROME [None]
  - SENSATION OF HEAVINESS [None]
  - STRESS [None]
  - SUICIDE ATTEMPT [None]
  - VISION BLURRED [None]
  - WEIGHT INCREASED [None]
